FAERS Safety Report 10027211 (Version 2)
Quarter: 2014Q2

REPORT INFORMATION
  Report Type: Spontaneous
  Country: GB (occurrence: GB)
  Receive Date: 20140321
  Receipt Date: 20140417
  Transmission Date: 20141212
  Serious: Yes (Death)
  Sender: FDA-Public Use
  Company Number: GB-ASTRAZENECA-2014SE19236

PATIENT
  Age: 63 Year
  Sex: Male

DRUGS (14)
  1. LISINOPRIL [Suspect]
     Route: 048
  2. ACETAMINOPHEN [Suspect]
     Route: 048
  3. SINGULAIR [Suspect]
     Route: 065
  4. ALBUTEROL [Suspect]
     Route: 065
  5. BUMETANIDE [Suspect]
     Route: 065
  6. FOSAMAX [Suspect]
     Route: 048
  7. HUMALOG [Suspect]
     Route: 065
  8. HUMULIN [Suspect]
     Route: 065
  9. INSULIN ISOPHANE BIPHASIC [Suspect]
     Route: 065
  10. INSUMAN COMB [Suspect]
     Route: 065
  11. NYSTATIN [Suspect]
     Route: 065
  12. SERETIDE [Suspect]
     Route: 065
  13. SPIRIVA [Suspect]
     Indication: CHRONIC OBSTRUCTIVE PULMONARY DISEASE
     Route: 065
  14. TRAMADOL HYDROCHLORIDE [Suspect]
     Route: 048

REACTIONS (1)
  - Lobar pneumonia [Fatal]
